FAERS Safety Report 14031270 (Version 2)
Quarter: 2017Q4

REPORT INFORMATION
  Report Type: Other
  Country: None (occurrence: FR)
  Receive Date: 20171003
  Receipt Date: 20171024
  Transmission Date: 20180321
  Serious: Yes (Life-Threatening, Other)
  Sender: FDA-Public Use
  Company Number: FR-MEDAC PHARMA, INC.-2028473

PATIENT
  Age: 77 Year
  Sex: Female

DRUGS (2)
  1. AZATHIOPRINE. [Suspect]
     Active Substance: AZATHIOPRINE
  2. METHOTREXATE. [Suspect]
     Active Substance: METHOTREXATE
     Indication: IMMUNOSUPPRESSANT DRUG THERAPY

REACTIONS (3)
  - Helicobacter infection [Recovered/Resolved]
  - Oesophageal squamous cell carcinoma [Recovered/Resolved]
  - Lymphoma [Recovered/Resolved]
